FAERS Safety Report 6694825-X (Version None)
Quarter: 2010Q2

REPORT INFORMATION
  Report Type: 
  Country: None (occurrence: None)
  Receive Date: 20100423
  Receipt Date: 20100412
  Transmission Date: 20101027
  Serious: Yes (Hospitalization)
  Sender: FDA-Public Use
  Company Number: US-JNJFOC-20091205651

PATIENT
  Sex: Female
  Weight: 79.38 kg

DRUGS (9)
  1. REMICADE [Suspect]
     Indication: CROHN'S DISEASE
     Dosage: ALSO REPORTED AS 250 MILLILITERS
     Route: 042
  2. BENADRYL [Concomitant]
     Indication: PREMEDICATION
  3. BENADRYL [Concomitant]
  4. BENADRYL [Concomitant]
  5. SOLU-CORTEF [Concomitant]
     Indication: PREMEDICATION
  6. SOLU-CORTEF [Concomitant]
  7. SOLU-CORTEF [Concomitant]
  8. TYLENOL-500 [Concomitant]
     Indication: PREMEDICATION
  9. TYLENOL-500 [Concomitant]

REACTIONS (6)
  - AMENORRHOEA [None]
  - DYSPNOEA [None]
  - HYPERSENSITIVITY [None]
  - INFUSION RELATED REACTION [None]
  - LOSS OF CONSCIOUSNESS [None]
  - PHARYNGEAL OEDEMA [None]
